FAERS Safety Report 8870862 (Version 1)
Quarter: 2012Q4

REPORT INFORMATION
  Report Type: Spontaneous
  Country: US (occurrence: None)
  Receive Date: 20121025
  Receipt Date: 20121025
  Transmission Date: 20130627
  Serious: Yes (Hospitalization)
  Sender: FDA-Public Use
  Company Number: ACO_32456_2012

PATIENT
  Age: 50 Year
  Sex: Female

DRUGS (4)
  1. AMPYRA [Suspect]
     Indication: GAIT DISTURBANCE
     Dosage: 10 mg, bid
  2. DONEPEZIL [Suspect]
     Dosage: 5 mg, qd
  3. GLATIRAMER (GLATIRAMER) [Concomitant]
  4. BACLOFEN (BACLOFEN) [Concomitant]

REACTIONS (2)
  - Grand mal convulsion [None]
  - Urinary tract infection [None]
